FAERS Safety Report 19164084 (Version 1)
Quarter: 2021Q2

REPORT INFORMATION
  Report Type: Other
  Country: SE (occurrence: SE)
  Receive Date: 20210421
  Receipt Date: 20210421
  Transmission Date: 20210717
  Serious: Yes (Other)
  Sender: FDA-Public Use
  Company Number: SE-ROCHE-2785786

PATIENT

DRUGS (7)
  1. RITUXIMAB. [Suspect]
     Active Substance: RITUXIMAB
     Indication: MANTLE CELL LYMPHOMA
     Dosage: DAY 1 IN CYCLE 1
     Route: 041
  2. VENETOCLAX. [Suspect]
     Active Substance: VENETOCLAX
     Dosage: DAYS 1?28 (AFTER RAMP?UP) (COHORT C)
     Route: 048
  3. VENETOCLAX. [Suspect]
     Active Substance: VENETOCLAX
     Dosage: DAYS 1?28 (AFTER RAMP?UP) (COHORT Y)
     Route: 048
  4. VENETOCLAX. [Suspect]
     Active Substance: VENETOCLAX
     Indication: MANTLE CELL LYMPHOMA
     Dosage: DAYS 1?28 (AFTER RAMP?UP) (COHORT A AND B)
     Route: 048
  5. LENALIDOMIDE [Suspect]
     Active Substance: LENALIDOMIDE
     Indication: MANTLE CELL LYMPHOMA
     Dosage: DAYS 1?21 (COHORT A AND Y)
     Route: 048
  6. RITUXIMAB. [Suspect]
     Active Substance: RITUXIMAB
     Indication: MANTLE CELL LYMPHOMA
     Dosage: DAYS 8, 15 AND 22 IN CYCLE 1, THEN DAY 1 IN CYCLES 3, 5, 7, 9 AND 11
     Route: 058
  7. LENALIDOMIDE [Suspect]
     Active Substance: LENALIDOMIDE
     Dosage: DAYS 1?21 (COHORT B AND C)
     Route: 048

REACTIONS (7)
  - Thrombocytopenia [Unknown]
  - Atrial flutter [Unknown]
  - Infection [Unknown]
  - Melaena [Unknown]
  - Neutropenia [Unknown]
  - Rash [Unknown]
  - Renal failure [Unknown]
